FAERS Safety Report 9174106 (Version 1)
Quarter: 2013Q1

REPORT INFORMATION
  Report Type: Spontaneous
  Country: US (occurrence: US)
  Receive Date: 20130320
  Receipt Date: 20130320
  Transmission Date: 20140127
  Serious: No
  Sender: FDA-Public Use
  Company Number: US-PFIZER INC-2013088386

PATIENT
  Age: 74 Year
  Sex: Female
  Weight: 63.49 kg

DRUGS (1)
  1. LEVOXYL [Suspect]
     Dosage: 88 UG, 1X/DAY

REACTIONS (1)
  - Diarrhoea [Not Recovered/Not Resolved]
